FAERS Safety Report 7080507-1 (Version None)
Quarter: 2010Q4

REPORT INFORMATION
  Report Type: 
  Country: None (occurrence: None)
  Receive Date: 20101025
  Receipt Date: 20101015
  Transmission Date: 20110411
  Serious: Yes (Life-Threatening, Hospitalization, Disabling, Other)
  Sender: FDA-Public Use
  Company Number: TRP_07091_2010

PATIENT
  Sex: Female

DRUGS (2)
  1. RIBAVARIN [Suspect]
     Indication: HEPATITIS C
     Dosage: (1000 MG, [600 MG QAM AND 400 MG QPM] ORAL)
     Route: 048
     Dates: start: 20100301, end: 20100101
  2. PEGASYS [Suspect]
     Indication: HEPATITIS C
     Dosage: (180 ?G 1X/WEEK)
     Dates: start: 20100301, end: 20100101

REACTIONS (2)
  - ANAEMIA [None]
  - BLOOD COUNT ABNORMAL [None]
